FAERS Safety Report 13929208 (Version 2)
Quarter: 2017Q4

REPORT INFORMATION
  Report Type: Spontaneous
  Country: US (occurrence: US)
  Receive Date: 20170901
  Receipt Date: 20171228
  Transmission Date: 20180320
  Serious: Yes (Hospitalization)
  Sender: FDA-Public Use
  Company Number: US-DSJP-DSU-2017-133799

PATIENT

DRUGS (2)
  1. BENICAR [Suspect]
     Active Substance: OLMESARTAN MEDOXOMIL
     Dosage: 20 MG, QD
     Route: 048
     Dates: start: 20100712, end: 20170519
  2. BENICAR [Suspect]
     Active Substance: OLMESARTAN MEDOXOMIL
     Indication: PRODUCT USED FOR UNKNOWN INDICATION
     Dosage: 40 MG, QD
     Route: 048
     Dates: start: 20100712, end: 20170519

REACTIONS (3)
  - Acute kidney injury [Recovering/Resolving]
  - Colitis microscopic [Recovering/Resolving]
  - Gastrointestinal inflammation [Recovering/Resolving]

NARRATIVE: CASE EVENT DATE: 201702
